FAERS Safety Report 9252145 (Version 1)
Quarter: 2013Q2

REPORT INFORMATION
  Report Type: Spontaneous
  Country: IR (occurrence: IR)
  Receive Date: 20130424
  Receipt Date: 20130424
  Transmission Date: 20140414
  Serious: Yes (Hospitalization, Other)
  Sender: FDA-Public Use
  Company Number: PHHY2013IR038270

PATIENT
  Age: 22 Year
  Sex: Male

DRUGS (6)
  1. ITRACONAZOLE [Suspect]
     Indication: BRONCHOPULMONARY ASPERGILLOSIS
     Dosage: 200 MG, BID
  2. VINCRISTINE [Suspect]
     Indication: DIFFUSE LARGE B-CELL LYMPHOMA
     Dosage: 1.4 MG/M2, ON DAY 1
  3. DOXORUBICIN [Concomitant]
     Dosage: 50 MG/M2, ON DAY 1
  4. PREDNISOLONE [Concomitant]
     Dosage: 40 MG/M2, ON DAYS 2-5
  5. RITUXIMAB [Concomitant]
     Dosage: 375 MG/M2, UNK
  6. CYCLOPHOSPHAMIDE [Concomitant]
     Dosage: 750 MG/M2, ON DAY 1

REACTIONS (7)
  - Grand mal convulsion [Unknown]
  - Loss of consciousness [Unknown]
  - Gastrointestinal toxicity [Unknown]
  - Abdominal pain [Unknown]
  - Constipation [Unknown]
  - Bronchopulmonary aspergillosis [Unknown]
  - Drug interaction [Unknown]
